FAERS Safety Report 9856523 (Version 6)
Quarter: 2014Q3

REPORT INFORMATION
  Report Type: Report from Study
  Country: DE (occurrence: DE)
  Receive Date: 20140130
  Receipt Date: 20140808
  Transmission Date: 20150326
  Serious: Yes (Hospitalization)
  Sender: FDA-Public Use
  Company Number: DE-BAYER-2014-013022

PATIENT
  Sex: Male
  Weight: 74.83 kg

DRUGS (14)
  1. RADIUM-223 DICHLORIDE [Suspect]
     Active Substance: RADIUM RA-223 DICHLORIDE
     Indication: PROSTATE CANCER METASTATIC
     Dosage: 3750 KBQ, ONCE
     Route: 042
     Dates: start: 20131126, end: 20131126
  2. RAMIPRIL. [Concomitant]
     Active Substance: RAMIPRIL
     Indication: HYPERTENSION
     Dosage: 5MG DAILY
     Route: 048
     Dates: start: 2005
  3. IBUPROFEN. [Concomitant]
     Active Substance: IBUPROFEN
     Indication: PAIN
     Dosage: TIOTAL DAILY DOSE 400 MG X3
     Route: 048
     Dates: start: 20131126
  4. CIPROBAY [Concomitant]
     Active Substance: CIPROFLOXACIN
     Dosage: UNK
     Dates: start: 20140123
  5. ASPIRIN. [Concomitant]
     Active Substance: ASPIRIN
     Dosage: UNK
     Dates: start: 20140122
  6. BISOPROLOL [Concomitant]
     Active Substance: BISOPROLOL
     Indication: HYPERTENSION
     Dosage: 5MG DAILY
     Route: 048
     Dates: start: 2005
  7. OXYCODON [Concomitant]
     Active Substance: OXYCODONE
     Indication: HORMONE-REFRACTORY PROSTATE CANCER
     Dosage: 5 MG, PRN
     Dates: start: 20140226, end: 20140318
  8. OXYCODON [Concomitant]
     Active Substance: OXYCODONE
     Indication: HORMONE-REFRACTORY PROSTATE CANCER
     Dosage: 30 MG, TID
     Route: 048
     Dates: start: 20140226, end: 20140403
  9. PANTOZOL [Concomitant]
     Active Substance: PANTOPRAZOLE SODIUM
     Dosage: 20MG DAILY
     Dates: start: 201402
  10. NOVAMINSULFON [Concomitant]
     Active Substance: METAMIZOLE
     Indication: PAIN
     Dosage: TOTAL DAILY DOSE 500 MG
     Route: 048
     Dates: start: 20131126
  11. OXYCODON [Concomitant]
     Active Substance: OXYCODONE
     Indication: HORMONE-REFRACTORY PROSTATE CANCER
     Dosage: 10 MG, QID
     Route: 048
     Dates: start: 20140319
  12. RADIUM-223 DICHLORIDE [Suspect]
     Active Substance: RADIUM RA-223 DICHLORIDE
     Indication: METASTASES TO BONE
     Dosage: 3840 KBQ, ONCE
     Route: 042
     Dates: start: 20140106, end: 20140106
  13. LAXOBERAL [Concomitant]
     Active Substance: SODIUM PICOSULFATE
     Indication: CONSTIPATION
     Dosage: TOTAL DAILY DOSE 20 GTT
     Route: 048
     Dates: start: 20140103
  14. OXYCODON [Concomitant]
     Active Substance: OXYCODONE
     Indication: HORMONE-REFRACTORY PROSTATE CANCER
     Dosage: 40 MG, TID
     Route: 048
     Dates: start: 20140403

REACTIONS (2)
  - Cauda equina syndrome [Recovering/Resolving]
  - Pain [Recovered/Resolved]

NARRATIVE: CASE EVENT DATE: 20140121
